FAERS Safety Report 7879974-2 (Version None)
Quarter: 2011Q4

REPORT INFORMATION
  Report Type: 
  Country: None (occurrence: None)
  Receive Date: 20111101
  Receipt Date: 20111017
  Transmission Date: 20120403
  Serious: Yes (Other)
  Sender: FDA-Public Use
  Company Number: DE-JUTA GMBH-2011-16713

PATIENT
  Sex: Female

DRUGS (11)
  1. THEOPHYLLINE [Suspect]
     Indication: PRODUCT USED FOR UNKNOWN INDICATION
     Dosage: 8 TABLETS MAXIMUM; TOTAL AMOUNT: 2400 MG
     Route: 048
     Dates: start: 20111001
  2. METFORMIN HCL [Suspect]
     Indication: PRODUCT USED FOR UNKNOWN INDICATION
     Dosage: 4 TABLETS MAXIMUM; TOTAL AMOUNT: 4000 MG
     Route: 048
     Dates: start: 20111001
  3. NEBIVOLOL (UNKNOWN) [Suspect]
     Indication: PRODUCT USED FOR UNKNOWN INDICATION
     Dosage: 4 TABLETS MAXIMUM; TOTAL AMOUNT: 20 MG
     Route: 048
     Dates: start: 20111001
  4. CYMBALTA [Suspect]
     Indication: PRODUCT USED FOR UNKNOWN INDICATION
     Dosage: 4 TABLETS MAXIMUM; TOTAL AMOUNT: 240 MG
     Route: 048
     Dates: start: 20111001
  5. LEVEMIR [Suspect]
     Indication: PRODUCT USED FOR UNKNOWN INDICATION
     Dosage: IU
     Route: 058
     Dates: start: 20111001
  6. INSULIN RAPID                      /00646008/ [Suspect]
     Indication: PRODUCT USED FOR UNKNOWN INDICATION
     Dosage: 10 ML
     Route: 065
     Dates: start: 20111001
  7. GABAPENTIN [Suspect]
     Indication: PRODUCT USED FOR UNKNOWN INDICATION
     Dosage: 2 TABLET; TOTAL AMOUNT: 600 MG
     Route: 048
     Dates: start: 20111001
  8. RAMIPRIL [Suspect]
     Indication: PRODUCT USED FOR UNKNOWN INDICATION
     Dosage: 4 TABLETS, TOTAL AMOUNT: 20 MG
     Route: 048
     Dates: start: 20111001
  9. DICLOFENAC SODIUM [Suspect]
     Indication: PRODUCT USED FOR UNKNOWN INDICATION
     Dosage: 8 TABLETS MAXIMUM; TOTAL AMOUNT: 400MG
     Route: 048
     Dates: start: 20111001
  10. FERROUS SULFATE TAB [Suspect]
     Indication: PRODUCT USED FOR UNKNOWN INDICATION
     Dosage: 8 TABLETS MAXIMUM
     Route: 048
     Dates: start: 20111001
  11. LEVOTHYROXINE SODIUM [Suspect]
     Indication: PRODUCT USED FOR UNKNOWN INDICATION
     Dosage: 4 TABLETS MAXIMUM; TOTAL AMOUNT: 0.6 MG
     Route: 048
     Dates: start: 20111001

REACTIONS (3)
  - AGITATION [None]
  - TACHYCARDIA [None]
  - SUICIDE ATTEMPT [None]
